FAERS Safety Report 4544657-3 (Version None)
Quarter: 2004Q4

REPORT INFORMATION
  Report Type: 
  Country: None (occurrence: None)
  Receive Date: 20041230
  Receipt Date: 20041112
  Transmission Date: 20050328
  Serious: Yes (Other)
  Sender: FDA-Public Use
  Company Number: 2004095714

PATIENT
  Sex: Male
  Weight: 99.7913 kg

DRUGS (6)
  1. VALDECOXIB [Suspect]
     Indication: ARTHRITIS
     Dosage: 10 MG  (10 MG, DAILY  INTERVAL: EVERY  DAY), ORAL
     Route: 048
     Dates: start: 20020101, end: 20040801
  2. SIMVASTATIN [Concomitant]
  3. GABAPENTIN [Concomitant]
  4. FEXOFENADINE HYDROCHLORIDE [Concomitant]
  5. PIOGLITAZONE HCL [Concomitant]
  6. GLYBURIDE [Concomitant]

REACTIONS (3)
  - GASTROINTESTINAL ULCER [None]
  - HELICOBACTER INFECTION [None]
  - HIGH DENSITY LIPOPROTEIN DECREASED [None]
